FAERS Safety Report 5057773-7 (Version None)
Quarter: 2006Q3

REPORT INFORMATION
  Report Type: 
  Country: None (occurrence: None)
  Receive Date: 20060721
  Receipt Date: 20060210
  Transmission Date: 20061208
  Serious: No
  Sender: FDA-Public Use
  Company Number: US-GLAXOSMITHKLINE-A0593298A

PATIENT
  Age: 44 Year
  Sex: Male

DRUGS (6)
  1. AVANDIA [Suspect]
     Dosage: 8MG PER DAY
     Route: 048
     Dates: start: 20060101
  2. GLUCOPHAGE [Suspect]
     Dosage: 500MG TWICE PER DAY
     Route: 048
     Dates: start: 20060101
  3. ZOCOR [Concomitant]
  4. ALTACE [Concomitant]
  5. ASPIRIN [Concomitant]
  6. NEURONTIN [Concomitant]

REACTIONS (2)
  - BLOOD GLUCOSE INCREASED [None]
  - DRUG INEFFECTIVE [None]
